FAERS Safety Report 4303487-8 (Version None)
Quarter: 2004Q1

REPORT INFORMATION
  Report Type: 
  Country: None (occurrence: None)
  Receive Date: 20040223
  Receipt Date: 20040209
  Transmission Date: 20041129
  Serious: Yes (Hospitalization, Other)
  Sender: FDA-Public Use
  Company Number: 2003117275

PATIENT
  Age: 51 Year
  Sex: Male
  Weight: 88.4514 kg

DRUGS (3)
  1. DIFLUCAN [Suspect]
     Indication: MENINGITIS COCCIDIOIDES
     Dosage: 1000 MG (DAILY), ORAL
     Route: 048
     Dates: start: 19941201, end: 19960501
  2. OTHER ANALGESICS AND ANTIPYRETICS [Suspect]
     Indication: PAIN
  3. AMPHOTERICIN B [Suspect]
     Indication: ILL-DEFINED DISORDER
     Dosage: 2 MG (TIW)

REACTIONS (12)
  - CARTILAGE INJURY [None]
  - DEVICE FAILURE [None]
  - DIABETES MELLITUS [None]
  - DRUG INEFFECTIVE [None]
  - FALL [None]
  - HERNIA [None]
  - HYPERTENSION [None]
  - INTESTINAL OBSTRUCTION [None]
  - MUSCULOSKELETAL STIFFNESS [None]
  - MYOCARDIAL INFARCTION [None]
  - STAPHYLOCOCCAL INFECTION [None]
  - WHITE BLOOD CELL COUNT DECREASED [None]
